FAERS Safety Report 13735292 (Version 1)
Quarter: 2017Q3

REPORT INFORMATION
  Report Type: Report from Study
  Country: DE (occurrence: DE)
  Receive Date: 20170710
  Receipt Date: 20170710
  Transmission Date: 20171127
  Serious: Yes (Hospitalization, Other)
  Sender: FDA-Public Use
  Company Number: PHHY2015DE162382

PATIENT
  Sex: Female
  Weight: 68 kg

DRUGS (6)
  1. CALCIVIT D [Concomitant]
     Indication: PRODUCT USED FOR UNKNOWN INDICATION
     Dosage: 1 DF ((500 MG CAL PLUS 400 IU VIT D)), QD
     Route: 065
     Dates: start: 20140701
  2. AFINITOR [Suspect]
     Active Substance: EVEROLIMUS
     Indication: BREAST CANCER METASTATIC
     Dosage: 5 MG, QD (ONCE DAILY)
     Route: 048
     Dates: start: 20140724, end: 20141117
  3. EXEMESTANE. [Concomitant]
     Active Substance: EXEMESTANE
     Indication: BREAST CANCER METASTATIC
     Dosage: 25 MG, QD
     Route: 048
     Dates: start: 20140724, end: 20151205
  4. AFINITOR [Suspect]
     Active Substance: EVEROLIMUS
     Dosage: 5 MG / 10 MG, ALTERANTING, QD
     Route: 048
     Dates: start: 20141118, end: 20151206
  5. FERROSANOL [Concomitant]
     Active Substance: FERROUS GLUCONATE
     Indication: PLEURAL EFFUSION
     Dosage: 100 MG, BID, 1-0-1
     Route: 048
     Dates: start: 20151202
  6. FERROSANOL [Concomitant]
     Active Substance: FERROUS GLUCONATE
     Indication: ANAEMIA

REACTIONS (6)
  - Empyema [Recovered/Resolved]
  - Pneumonia [Recovered/Resolved]
  - Pleuritic pain [Recovered/Resolved]
  - Pleural effusion [Recovered/Resolved]
  - C-reactive protein increased [Recovered/Resolved]
  - Gamma-glutamyltransferase increased [Recovered/Resolved]

NARRATIVE: CASE EVENT DATE: 20151116
